FAERS Safety Report 16730120 (Version 1)
Quarter: 2019Q3

REPORT INFORMATION
  Report Type: Spontaneous
  Country: US (occurrence: US)
  Receive Date: 20190822
  Receipt Date: 20190822
  Transmission Date: 20191005
  Serious: No
  Sender: FDA-Public Use
  Company Number: US-PACIRA-201800174

PATIENT
  Sex: Male

DRUGS (3)
  1. NORMAL SALINE [Suspect]
     Active Substance: SODIUM CHLORIDE
     Indication: HIP ARTHROPLASTY
     Dosage: 30 ML, SINGLE, FREQUENCY : SINGLE
     Dates: start: 20181011, end: 20181011
  2. EXPAREL [Suspect]
     Active Substance: BUPIVACAINE
     Indication: HIP ARTHROPLASTY
     Dosage: 266 MG, SINGLE, FREQUENCY : SINGLE
     Dates: start: 20181011, end: 20181011
  3. MARCAINE [Suspect]
     Active Substance: BUPIVACAINE HYDROCHLORIDE
     Indication: HIP ARTHROPLASTY
     Dosage: 30 ML, SINGLE, FREQUENCY : SINGLE
     Dates: start: 20181011, end: 20181011

REACTIONS (1)
  - Skin necrosis [Not Recovered/Not Resolved]
